FAERS Safety Report 6616384-X (Version None)
Quarter: 2010Q1

REPORT INFORMATION
  Report Type: 
  Country: None (occurrence: None)
  Receive Date: 20100305
  Receipt Date: 20100226
  Transmission Date: 20100710
  Serious: Yes (Other)
  Sender: FDA-Public Use
  Company Number: GB-JNJFOC-20100300215

PATIENT
  Age: 27 Year
  Sex: Male
  Weight: 90 kg

DRUGS (4)
  1. RISPERIDONE [Suspect]
     Indication: SCHIZOPHRENIA
     Route: 048
  2. CHLORPHENIRAMINE MALEATE [Concomitant]
     Indication: DRUG HYPERSENSITIVITY
     Route: 048
  3. ACETAMINOPHEN AND CODEINE PHOSPHATE [Concomitant]
     Indication: PAIN
     Route: 048
  4. BETNOVATE [Concomitant]
     Indication: DRUG USE FOR UNKNOWN INDICATION
     Route: 061

REACTIONS (4)
  - DRY SKIN [None]
  - ERYTHEMA [None]
  - PRURITUS [None]
  - RASH [None]
